FAERS Safety Report 7529468-9 (Version None)
Quarter: 2011Q2

REPORT INFORMATION
  Report Type: 
  Country: None (occurrence: None)
  Receive Date: 20110607
  Receipt Date: 20050208
  Transmission Date: 20111010
  Serious: Yes (Other)
  Sender: FDA-Public Use
  Company Number: PHNR2005AU00537

PATIENT
  Sex: Female

DRUGS (1)
  1. CLOZARIL [Suspect]
     Dosage: 12-550 MG,DAILY
     Dates: start: 19960404

REACTIONS (2)
  - HALLUCINATION, AUDITORY [None]
  - ALTERED STATE OF CONSCIOUSNESS [None]
